FAERS Safety Report 4931023-1 (Version None)
Quarter: 2006Q1

REPORT INFORMATION
  Report Type: 
  Country: None (occurrence: None)
  Receive Date: 20060227
  Receipt Date: 20060216
  Transmission Date: 20060701
  Serious: Yes (Other)
  Sender: FDA-Public Use
  Company Number: 200610917BWH

PATIENT
  Sex: Female

DRUGS (4)
  1. AVELOX [Suspect]
     Indication: MYCOBACTERIUM AVIUM COMPLEX INFECTION
     Dosage: 400 MG QD ORAL
     Route: 048
     Dates: start: 20050101
  2. MYAMBUTOL [Suspect]
  3. ZITHROMAX [Concomitant]
  4. BIAXIN [Concomitant]

REACTIONS (8)
  - DYSKINESIA [None]
  - DYSPHEMIA [None]
  - HALLUCINATION [None]
  - JOINT SWELLING [None]
  - MENTAL STATUS CHANGES [None]
  - MOOD ALTERED [None]
  - VISUAL ACUITY REDUCED [None]
  - WEIGHT DECREASED [None]
